FAERS Safety Report 17584940 (Version 1)
Quarter: 2020Q1

REPORT INFORMATION
  Report Type: Spontaneous
  Country: US (occurrence: US)
  Receive Date: 20200325
  Receipt Date: 20200325
  Transmission Date: 20200409
  Serious: No
  Sender: FDA-Public Use
  Company Number: None

PATIENT

DRUGS (1)
  1. SINGLE-DOSE FOR ACETAMINOPHEN [Suspect]
     Active Substance: ACETAMINOPHEN
     Indication: PAIN
     Dates: start: 20200325, end: 20200325

REACTIONS (4)
  - Eye injury [None]
  - Product package associated injury [None]
  - Foreign body in eye [None]
  - Vision blurred [None]

NARRATIVE: CASE EVENT DATE: 20200325
